FAERS Safety Report 10086485 (Version 2)
Quarter: 2014Q2

REPORT INFORMATION
  Report Type: Spontaneous
  Country: BR (occurrence: BR)
  Receive Date: 20140418
  Receipt Date: 20140421
  Transmission Date: 20141212
  Serious: Yes (Hospitalization, Other)
  Sender: FDA-Public Use
  Company Number: BR-PFIZER INC-2014106793

PATIENT
  Age: 68 Year
  Sex: Female
  Weight: 68 kg

DRUGS (6)
  1. LYRICA [Suspect]
     Dosage: UNK
  2. CELEBRA [Suspect]
     Dosage: UNK
  3. ASPIRINA PREVENT [Concomitant]
     Dosage: UNK
  4. CONCOR [Concomitant]
     Dosage: UNK
  5. LOTAR [Concomitant]
     Dosage: UNK
  6. PANTOPRAZOLE [Concomitant]
     Indication: GASTRIC DISORDER
     Dosage: UNK

REACTIONS (6)
  - Venous occlusion [Unknown]
  - Angina pectoris [Unknown]
  - Asphyxia [Unknown]
  - Malaise [Unknown]
  - Dyspnoea [Unknown]
  - Venous occlusion [Unknown]
